FAERS Safety Report 16860180 (Version 1)
Quarter: 2019Q3

REPORT INFORMATION
  Report Type: Spontaneous
  Country: AR (occurrence: AR)
  Receive Date: 20190927
  Receipt Date: 20190927
  Transmission Date: 20191005
  Serious: Yes (Other)
  Sender: FDA-Public Use
  Company Number: AR-JNJFOC-20190929922

PATIENT
  Age: 82 Year
  Sex: Female

DRUGS (3)
  1. IMBRUVICA [Suspect]
     Active Substance: IBRUTINIB
     Indication: CHRONIC LYMPHOCYTIC LEUKAEMIA
     Route: 048
     Dates: start: 201707
  2. BISOPROLOL [Concomitant]
     Active Substance: BISOPROLOL
  3. NIMODIPINE. [Concomitant]
     Active Substance: NIMODIPINE

REACTIONS (2)
  - Balance disorder [Not Recovered/Not Resolved]
  - Angiopathy [Not Recovered/Not Resolved]
